FAERS Safety Report 9166160 (Version 3)
Quarter: 2013Q4

REPORT INFORMATION
  Report Type: Spontaneous
  Country: US (occurrence: US)
  Receive Date: 20130315
  Receipt Date: 20131122
  Transmission Date: 20140711
  Serious: Yes (Other)
  Sender: FDA-Public Use
  Company Number: US-UCBSA-080470

PATIENT
  Age: 20 Year
  Sex: Male
  Weight: 81.64 kg

DRUGS (1)
  1. CIMZIA [Suspect]
     Indication: CROHN^S DISEASE
     Dosage: 400 MG EVERY 4 WEEKS; EXPIRY DATE: ??/DEC/2015
     Route: 058
     Dates: start: 20100920

REACTIONS (1)
  - Testicular swelling [Not Recovered/Not Resolved]
